FAERS Safety Report 8864936 (Version 1)
Quarter: 2012Q4

REPORT INFORMATION
  Report Type: 
  Country: US (occurrence: US)
  Receive Date: 20121024
  Receipt Date: 20121024
  Transmission Date: 20130627
  Serious: No
  Sender: FDA-Public Use
  Company Number: US-AMGEN-USASP2012000350

PATIENT
  Sex: Male
  Weight: 83.9 kg

DRUGS (5)
  1. ENBREL [Suspect]
     Indication: PRODUCT USED FOR UNKNOWN INDICATION
     Dosage: 50 mg, qwk
     Route: 058
  2. LEVOTHYROXIN [Concomitant]
     Dosage: 100 mug, UNK
  3. HUMIRA [Concomitant]
     Dosage: 40 mg, UNK
  4. ADVAIR [Concomitant]
     Dosage: UNK
  5. PREDNISONE [Concomitant]
     Dosage: 1 mg, UNK

REACTIONS (3)
  - Hypersensitivity [Unknown]
  - Injection site reaction [Unknown]
  - Drug ineffective [Unknown]
